FAERS Safety Report 9911720 (Version 1)
Quarter: 2014Q1

REPORT INFORMATION
  Report Type: Spontaneous
  Country: JP (occurrence: JP)
  Receive Date: 20140219
  Receipt Date: 20140219
  Transmission Date: 20141002
  Serious: Yes (Death, Other)
  Sender: FDA-Public Use
  Company Number: PHHY2014JP018239

PATIENT
  Age: 43 Year
  Sex: Male

DRUGS (18)
  1. ETOPOSIDE [Suspect]
     Indication: HEPATOCELLULAR CARCINOMA
     Dosage: 30 MG/M2, UNK
  2. ETOPOSIDE [Suspect]
     Indication: METASTASES TO LYMPH NODES
  3. ETOPOSIDE [Suspect]
     Indication: CHEMOTHERAPY
  4. 5-FLUOROURACIL [Suspect]
     Indication: HEPATOCELLULAR CARCINOMA
     Dosage: 250 MG, PER DAY
  5. 5-FLUOROURACIL [Suspect]
     Indication: METASTASES TO LYMPH NODES
     Dosage: 300 MG/M2, UNK
  6. 5-FLUOROURACIL [Suspect]
     Indication: CHEMOTHERAPY
  7. CISPLATIN [Suspect]
     Indication: HEPATOCELLULAR CARCINOMA
     Dosage: 10 MG, PER DAY
  8. CISPLATIN [Suspect]
     Indication: METASTASES TO LYMPH NODES
  9. CISPLATIN [Suspect]
     Indication: CHEMOTHERAPY
  10. CARBOPLATIN [Suspect]
     Indication: HEPATOCELLULAR CARCINOMA
     Dosage: 200 MG/M2, UNK
  11. CARBOPLATIN [Suspect]
     Indication: METASTASES TO LYMPH NODES
  12. CARBOPLATIN [Suspect]
     Indication: CHEMOTHERAPY
  13. EPIRUBICIN [Suspect]
     Indication: HEPATOCELLULAR CARCINOMA
     Dosage: 40 MG/M2, UNK
  14. EPIRUBICIN [Suspect]
     Indication: METASTASES TO LYMPH NODES
  15. EPIRUBICIN [Suspect]
     Indication: CHEMOTHERAPY
  16. NSAID^S [Concomitant]
     Indication: BACK PAIN
  17. OPIOIDS [Concomitant]
     Indication: BACK PAIN
  18. OPIOIDS [Concomitant]
     Indication: ANALGESIC THERAPY

REACTIONS (8)
  - Death [Fatal]
  - Leukopenia [Unknown]
  - Thrombocytopenia [Unknown]
  - Metastases to lung [Unknown]
  - Malignant neoplasm progression [Unknown]
  - Metastases to skin [Unknown]
  - Metastases to lymph nodes [Unknown]
  - Drug effect incomplete [Unknown]
